FAERS Safety Report 16671128 (Version 3)
Quarter: 2019Q4

REPORT INFORMATION
  Report Type: Spontaneous
  Country: JP (occurrence: JP)
  Receive Date: 20190805
  Receipt Date: 20191028
  Transmission Date: 20200122
  Serious: Yes (Hospitalization, Other)
  Sender: FDA-Public Use
  Company Number: JP-009507513-1906JPN002935J

PATIENT
  Age: 73 Year
  Sex: Male

DRUGS (1)
  1. THERAPY UNSPECIFIED [Suspect]
     Active Substance: UNSPECIFIED INGREDIENT
     Dosage: 300 MILLIGRAM/DAY
     Route: 048

REACTIONS (7)
  - Constipation [Unknown]
  - Dysuria [Unknown]
  - Dyskinesia [Unknown]
  - Bradykinesia [Unknown]
  - Dyskinesia [Recovering/Resolving]
  - Musculoskeletal stiffness [Unknown]
  - Multiple system atrophy [Unknown]
